FAERS Safety Report 21985413 (Version 1)
Quarter: 2023Q1

REPORT INFORMATION
  Report Type: Spontaneous
  Country: US (occurrence: None)
  Receive Date: 20230209
  Receipt Date: 20230209
  Transmission Date: 20230417
  Serious: No
  Sender: FDA-Public Use
  Company Number: None

PATIENT
  Sex: Female

DRUGS (1)
  1. HYDROXYPROGESTERONE CAPROATE [Suspect]
     Active Substance: HYDROXYPROGESTERONE CAPROATE
     Dosage: OTHER FREQUENCY : OTHER;?
     Route: 058

REACTIONS (3)
  - Abortion spontaneous [None]
  - Maternal drugs affecting foetus [None]
  - Exposure during pregnancy [None]
